FAERS Safety Report 17639435 (Version 1)
Quarter: 2020Q2

REPORT INFORMATION
  Report Type: Spontaneous
  Country: US (occurrence: US)
  Receive Date: 20200407
  Receipt Date: 20200407
  Transmission Date: 20200713
  Serious: Yes (Other)
  Sender: FDA-Public Use
  Company Number: US-PFIZER INC-2020139390

PATIENT
  Age: 74 Year
  Sex: Male

DRUGS (1)
  1. VYNDAMAX [Suspect]
     Active Substance: TAFAMIDIS
     Indication: AMYLOIDOSIS
     Dosage: 61 MG, UNK

REACTIONS (8)
  - Neuropathy peripheral [Unknown]
  - Lymphoedema [Unknown]
  - Carpal tunnel syndrome [Unknown]
  - Dyspnoea exertional [Unknown]
  - Device malfunction [Unknown]
  - Hypertension [Unknown]
  - Blood cholesterol increased [Unknown]
  - Hernia [Unknown]
